FAERS Safety Report 6319428-8 (Version None)
Quarter: 2009Q3

REPORT INFORMATION
  Report Type: 
  Country: None (occurrence: None)
  Receive Date: 20090822
  Receipt Date: 20080924
  Transmission Date: 20100115
  Serious: No
  Sender: FDA-Public Use
  Company Number: US-ABBOTT-08P-163-0474458-00

PATIENT
  Sex: Male

DRUGS (2)
  1. NIASPAN [Suspect]
     Indication: DRUG USE FOR UNKNOWN INDICATION
  2. EZETIMIBE [Concomitant]
     Indication: DRUG USE FOR UNKNOWN INDICATION
     Route: 048

REACTIONS (5)
  - MUSCLE STRAIN [None]
  - MYALGIA [None]
  - PAIN IN EXTREMITY [None]
  - RASH MACULAR [None]
  - RASH PAPULAR [None]
